FAERS Safety Report 6769965-7 (Version None)
Quarter: 2010Q2

REPORT INFORMATION
  Report Type: 
  Country: None (occurrence: None)
  Receive Date: 20100615
  Receipt Date: 20100607
  Transmission Date: 20101027
  Serious: Yes (Hospitalization)
  Sender: FDA-Public Use
  Company Number: B0660644A

PATIENT
  Sex: Female

DRUGS (1)
  1. SUMATRIPTAN SUCCINATE [Suspect]
     Indication: DRUG USE FOR UNKNOWN INDICATION

REACTIONS (10)
  - ANXIETY [None]
  - BURNING SENSATION [None]
  - DEVICE FAILURE [None]
  - DEVICE LEAKAGE [None]
  - FALL [None]
  - LOSS OF CONSCIOUSNESS [None]
  - PARALYSIS [None]
  - PYREXIA [None]
  - SYRINGE ISSUE [None]
  - THROAT TIGHTNESS [None]
